FAERS Safety Report 6879004-5 (Version None)
Quarter: 2010Q3

REPORT INFORMATION
  Report Type: 
  Country: None (occurrence: None)
  Receive Date: 20100728
  Receipt Date: 20100713
  Transmission Date: 20110219
  Serious: No
  Sender: FDA-Public Use
  Company Number: US-BAYER-201027911NA

PATIENT
  Age: 22 Year
  Sex: Female

DRUGS (1)
  1. MIRENA [Suspect]
     Indication: CONTRACEPTION
     Dosage: FREQUENCY CONTINUOUS
     Route: 015
     Dates: start: 20060101

REACTIONS (7)
  - AMENORRHOEA [None]
  - DEVICE DISLOCATION [None]
  - MOOD SWINGS [None]
  - MUSCLE SPASMS [None]
  - OVARIAN CYST [None]
  - PREMENSTRUAL SYNDROME [None]
  - VAGINAL HAEMORRHAGE [None]
